FAERS Safety Report 10201969 (Version 1)
Quarter: 2014Q2

REPORT INFORMATION
  Report Type: Spontaneous
  Country: US (occurrence: US)
  Receive Date: 20140528
  Receipt Date: 20140528
  Transmission Date: 20141212
  Serious: No
  Sender: FDA-Public Use
  Company Number: US-BRISTOL-MYERS SQUIBB COMPANY-19732833

PATIENT
  Age: 52 Year
  Sex: Female
  Weight: 105.67 kg

DRUGS (2)
  1. METFORMIN HCL [Suspect]
     Indication: BLOOD GLUCOSE
     Route: 048
  2. VICTOZA [Suspect]
     Indication: BLOOD GLUCOSE

REACTIONS (2)
  - Injection site rash [Unknown]
  - Weight decreased [Unknown]
